FAERS Safety Report 10084954 (Version 1)
Quarter: 2014Q2

REPORT INFORMATION
  Report Type: Spontaneous
  Country: US (occurrence: None)
  Receive Date: 20140409
  Receipt Date: 20140409
  Transmission Date: 20141212
  Serious: Yes (Hospitalization)
  Sender: FDA-Public Use
  Company Number: 2014-00354

PATIENT
  Age: 12 Year
  Sex: Male

DRUGS (11)
  1. SERTRALINE (UNKNOWN) (SERTRALINE) [Suspect]
     Indication: DEPRESSIVE SYMPTOM
  2. CARBAMAZEPINE [Concomitant]
  3. RISPERIDONE [Concomitant]
  4. CLONIDINE [Concomitant]
  5. MELATONIN [Concomitant]
  6. ARIPIPRAZOLE [Concomitant]
  7. OLANZAPINE [Concomitant]
  8. CHLORPROMAZINE [Concomitant]
  9. HALOPERIDOL [Concomitant]
  10. QUETIAPINE (UNKNOWN) (QUETIAPINE FUMARATE) [Concomitant]
  11. DIPHENHYDRAMINE [Concomitant]

REACTIONS (2)
  - Serotonin syndrome [None]
  - Psychotic disorder [None]
